FAERS Safety Report 4709535-5 (Version None)
Quarter: 2005Q3

REPORT INFORMATION
  Report Type: 
  Country: None (occurrence: None)
  Receive Date: 20050706
  Receipt Date: 20050617
  Transmission Date: 20060218
  Serious: Yes (Death, Life-Threatening, Other)
  Sender: FDA-Public Use
  Company Number: 2005-01368

PATIENT
  Age: 57 Year
  Sex: Male

DRUGS (8)
  1. INTEGRILIN [Suspect]
     Indication: CORONARY ANGIOPLASTY
     Dosage: SEE IMAGE
     Dates: start: 20050613, end: 20050613
  2. INTEGRILIN [Suspect]
     Indication: CORONARY ANGIOPLASTY
     Dosage: SEE IMAGE
     Dates: start: 20050613, end: 20050613
  3. CLOPILET (CLOPIDOGREL) [Suspect]
     Dosage: 75.00 MG, BID, ORAL
     Route: 048
  4. ECOSPRIN (ACETYLSALICYLIC ACID) [Suspect]
     Dosage: 150.00 MG, QD, ORAL
     Route: 048
  5. HEPARIN [Suspect]
     Dosage: 2500.00 IU, Q6HR, INTRAVENOUS
     Route: 042
  6. BETALOC (METOPROLOL TARTRATE) [Concomitant]
  7. ISOSORBIDE MONONITRATE [Concomitant]
  8. RAMIPRIL [Concomitant]

REACTIONS (3)
  - EPISTAXIS [None]
  - HAEMORRHAGE [None]
  - PULMONARY OEDEMA [None]
